FAERS Safety Report 12514389 (Version 1)
Quarter: 2016Q2

REPORT INFORMATION
  Report Type: Spontaneous
  Country: US (occurrence: None)
  Receive Date: 20160629
  Receipt Date: 20160629
  Transmission Date: 20160815
  Serious: No
  Sender: FDA-Public Use
  Company Number: None

PATIENT
  Age: 60 Year
  Sex: Male

DRUGS (1)
  1. CLOZAPINE. [Suspect]
     Active Substance: CLOZAPINE
     Indication: PSYCHOTIC DISORDER
     Dosage: 6
     Route: 048

REACTIONS (3)
  - Dizziness [None]
  - Dehydration [None]
  - Blood pressure orthostatic decreased [None]

NARRATIVE: CASE EVENT DATE: 20150712
